FAERS Safety Report 11378080 (Version 1)
Quarter: 2015Q3

REPORT INFORMATION
  Report Type: Spontaneous
  Country: US (occurrence: US)
  Receive Date: 20150811
  Receipt Date: 20150811
  Transmission Date: 20151125
  Serious: No
  Sender: FDA-Public Use
  Company Number: US-ELI_LILLY_AND_COMPANY-US201201002622

PATIENT
  Age: 68 Year
  Sex: Female
  Weight: 90.25 kg

DRUGS (3)
  1. ADCIRCA [Suspect]
     Active Substance: TADALAFIL
  2. TRACLEER [Concomitant]
     Active Substance: BOSENTAN
     Dosage: UNK
  3. REMODULIN [Concomitant]
     Active Substance: TREPROSTINIL
     Indication: PULMONARY HYPERTENSION
     Dosage: 71 UNK, UNK
     Route: 042
     Dates: start: 20100630

REACTIONS (5)
  - Headache [Unknown]
  - Activities of daily living impaired [Unknown]
  - Diarrhoea [Unknown]
  - Sleep disorder [Unknown]
  - Oedema [Unknown]
